FAERS Safety Report 5728332-5 (Version None)
Quarter: 2008Q2

REPORT INFORMATION
  Report Type: 
  Country: None (occurrence: None)
  Receive Date: 20080506
  Receipt Date: 20080422
  Transmission Date: 20081010
  Serious: Yes (Life-Threatening)
  Sender: FDA-Public Use
  Company Number: US-ELI_LILLY_AND_COMPANY-US200804005921

PATIENT
  Sex: Male

DRUGS (3)
  1. ZYPREXA [Suspect]
  2. ATIVAN [Concomitant]
  3. ANTIPSYCHOTICS [Concomitant]

REACTIONS (2)
  - ADVERSE EVENT [None]
  - AGGRESSION [None]
